FAERS Safety Report 4882395-8 (Version None)
Quarter: 2005Q4

REPORT INFORMATION
  Report Type: 
  Country: None (occurrence: None)
  Receive Date: 20051201
  Receipt Date: 20050928
  Transmission Date: 20060501
  Serious: No
  Sender: FDA-Public Use
  Company Number: 2005PV002630

PATIENT
  Sex: Male

DRUGS (6)
  1. BYETTA [Suspect]
     Indication: DRUG USE FOR UNKNOWN INDICATION
     Dosage: 10 MCG;QPM;SC
     Route: 058
     Dates: end: 20050829
  2. BYETTA [Suspect]
     Dosage: 5 MCG;QAM;SC
     Route: 058
     Dates: end: 20050829
  3. BYETTA [Suspect]
     Dosage: 10 MCG;BID;SC
     Route: 058
     Dates: start: 20050814
  4. BYETTA [Suspect]
     Dosage: 5 MCG;BID;SC
     Route: 058
     Dates: start: 20050801, end: 20050814
  5. HUMULIN 70/30 [Concomitant]
  6. NOVOLIN 70/30 [Concomitant]

REACTIONS (5)
  - DIARRHOEA [None]
  - NAUSEA [None]
  - THERAPEUTIC RESPONSE UNEXPECTED [None]
  - WEIGHT DECREASED [None]
  - WEIGHT INCREASED [None]
